FAERS Safety Report 5357719-8 (Version None)
Quarter: 2007Q2

REPORT INFORMATION
  Report Type: 
  Country: None (occurrence: None)
  Receive Date: 20070614
  Receipt Date: 20070604
  Transmission Date: 20071010
  Serious: Yes (Other)
  Sender: FDA-Public Use
  Company Number: GB-PFIZER INC-2007027624

PATIENT
  Sex: Female
  Weight: 103 kg

DRUGS (11)
  1. EXUBERA [Suspect]
     Indication: DIABETES MELLITUS
     Dosage: DAILY DOSE:19MG
     Route: 055
  2. METFORMIN HCL [Concomitant]
  3. INSULIN DETEMIR [Concomitant]
     Dosage: DAILY DOSE:44I.U.-FREQ:DAILY
  4. STATINS [Concomitant]
     Dosage: DAILY DOSE:40MG-FREQ:DAILY
  5. LISINOPRIL [Concomitant]
     Dosage: DAILY DOSE:20MG-FREQ:DAILY
  6. BECLOMETHASONE DIPROPIONATE [Concomitant]
     Dosage: FREQ:DAILY
     Route: 045
  7. THYROXIN [Concomitant]
     Dosage: FREQ:DAILY
  8. MELOXICAM [Concomitant]
     Dosage: DAILY DOSE:15MG-FREQ:DAILY
  9. ALL OTHER THERAPEUTIC PRODUCTS [Concomitant]
     Dosage: DAILY DOSE:5MG-FREQ:DAILY
  10. LANSOPRAZOLE [Concomitant]
  11. DOMPERIDONE [Concomitant]

REACTIONS (5)
  - ASTHMA [None]
  - BLOOD GLUCOSE INCREASED [None]
  - COUGH [None]
  - NASOPHARYNGITIS [None]
  - UPPER RESPIRATORY TRACT INFECTION [None]
